FAERS Safety Report 10978363 (Version 1)
Quarter: 2015Q1

REPORT INFORMATION
  Report Type: Spontaneous
  Country: None (occurrence: None)
  Receive Date: 20150331
  Receipt Date: 20150331
  Transmission Date: 20150721
  Serious: Yes (Hospitalization)
  Sender: FDA-Public Use
  Company Number: 2015030061

PATIENT
  Age: 58 Year
  Sex: Male
  Weight: 75 kg

DRUGS (6)
  1. ELTROXIN LF (LEVOTHYROXINE SODIUM) [Concomitant]
  2. TOREM (TORASEMIDE) [Suspect]
     Active Substance: TORSEMIDE
     Route: 048
     Dates: start: 201403, end: 20141210
  3. ESOMEP MUPS 40 MG (ESOMEPRAZOLE MAGNESIUM) [Concomitant]
  4. LISINOPRIL. [Suspect]
     Active Substance: LISINOPRIL
     Route: 048
     Dates: start: 201403, end: 20141210
  5. MARCOUMAR (PHENPROCOUMON) [Concomitant]
     Active Substance: PHENPROCOUMON
  6. CONCOR (BISOPROLOL FUMARATE) [Concomitant]

REACTIONS (3)
  - Acute kidney injury [None]
  - Diarrhoea [None]
  - Blood phosphorus increased [None]

NARRATIVE: CASE EVENT DATE: 20141210
